FAERS Safety Report 12544492 (Version 1)
Quarter: 2016Q3

REPORT INFORMATION
  Report Type: Spontaneous
  Country: US (occurrence: US)
  Receive Date: 20160711
  Receipt Date: 20160711
  Transmission Date: 20161109
  Serious: No
  Sender: FDA-Public Use
  Company Number: US-PFIZER INC-2016332182

PATIENT
  Age: 60 Year
  Sex: Female
  Weight: 150 kg

DRUGS (1)
  1. LYRICA [Suspect]
     Active Substance: PREGABALIN
     Indication: FIBROMYALGIA
     Dosage: 50 MG, 2X/DAY
     Route: 048
     Dates: start: 2015, end: 201606

REACTIONS (3)
  - Peripheral swelling [Recovered/Resolved]
  - Intentional product use issue [Unknown]
  - Swelling [Recovered/Resolved]
